FAERS Safety Report 13740000 (Version 1)
Quarter: 2017Q3

REPORT INFORMATION
  Report Type: Spontaneous
  Country: US (occurrence: US)
  Receive Date: 20170711
  Receipt Date: 20170711
  Transmission Date: 20171127
  Serious: Yes (Other)
  Sender: FDA-Public Use
  Company Number: US-STRIDES ARCOLAB LIMITED-2017SP006323

PATIENT

DRUGS (2)
  1. IMIQUIMOD. [Suspect]
     Active Substance: IMIQUIMOD
     Indication: BREAST CANCER METASTATIC
     Dosage: UNK
     Route: 061
  2. PACLITAXEL. [Suspect]
     Active Substance: PACLITAXEL
     Indication: BREAST CANCER METASTATIC
     Dosage: 100 MG/M2, UNKNOWN
     Route: 042

REACTIONS (3)
  - Peripheral motor neuropathy [Unknown]
  - Dizziness [Unknown]
  - Peripheral sensory neuropathy [Unknown]
